FAERS Safety Report 9882803 (Version 1)
Quarter: 2014Q1

REPORT INFORMATION
  Report Type: Spontaneous
  Country: NL (occurrence: NL)
  Receive Date: 20140207
  Receipt Date: 20140207
  Transmission Date: 20141002
  Serious: Yes (Hospitalization)
  Sender: FDA-Public Use
  Company Number: NL-ASTRAZENECA-2014SE07402

PATIENT
  Age: 68 Year
  Sex: Male

DRUGS (3)
  1. BICALUTAMIDE [Suspect]
     Indication: PROSTATE CANCER
     Route: 048
     Dates: start: 201302, end: 20131216
  2. ZOLADEX IMPLANTATIESTIFT [Concomitant]
     Dosage: 10,8MG IN WWSP
     Route: 058
  3. KEPPRA TABLET FILMOMHULD 500MG [Concomitant]
     Route: 048

REACTIONS (3)
  - Hepatic steatosis [Recovering/Resolving]
  - Ascites [Recovering/Resolving]
  - Liver function test abnormal [Recovering/Resolving]
